FAERS Safety Report 21172811 (Version 2)
Quarter: 2022Q3

REPORT INFORMATION
  Report Type: Spontaneous
  Country: TR (occurrence: TR)
  Receive Date: 20220804
  Receipt Date: 20220813
  Transmission Date: 20221027
  Serious: Yes (Life-Threatening, Other)
  Sender: FDA-Public Use
  Company Number: TR-002147023-NVSC2022TR168444

PATIENT
  Age: 38 Year
  Sex: Male
  Weight: 92 kg

DRUGS (4)
  1. XOLAIR [Suspect]
     Active Substance: OMALIZUMAB
     Indication: Urticaria
     Dosage: 300 MG, QMO (FIRST TIMES 2X150 MG)
     Route: 065
     Dates: start: 20191107
  2. XOLAIR [Suspect]
     Active Substance: OMALIZUMAB
     Indication: Hypersensitivity
     Dosage: 1 DOSAGE FORM, BIW (FROM LAST 6 WEEKS 1 IN 15 DAYS)
     Route: 065
  3. XOLAIR [Suspect]
     Active Substance: OMALIZUMAB
     Dosage: 600 MG, QMO (FIRST TIMES MONTHLY LAST 6 WEEKS 1 IN 15 DAYS)
     Route: 065
  4. BILASTINE [Suspect]
     Active Substance: BILASTINE
     Indication: Urticaria
     Route: 065

REACTIONS (9)
  - Shock [Unknown]
  - Mental impairment [Unknown]
  - Hypotension [Not Recovered/Not Resolved]
  - Asthenia [Unknown]
  - Urticaria [Not Recovered/Not Resolved]
  - Inappropriate schedule of product administration [Unknown]
  - Off label use [Unknown]
  - Dependence [Not Recovered/Not Resolved]
  - Withdrawal syndrome [Not Recovered/Not Resolved]

NARRATIVE: CASE EVENT DATE: 20191107
